FAERS Safety Report 9343023 (Version 3)
Quarter: 2013Q4

REPORT INFORMATION
  Report Type: Report from Study
  Country: RS (occurrence: RS)
  Receive Date: 20130611
  Receipt Date: 20131108
  Transmission Date: 20140711
  Serious: Yes (Other)
  Sender: FDA-Public Use
  Company Number: RS-009507513-1306SRB004472

PATIENT
  Age: 67 Year
  Sex: Female

DRUGS (3)
  1. ESMERON [Suspect]
     Indication: MUSCLE RELAXANT THERAPY
     Dosage: 70 MG, UNK
     Route: 042
     Dates: start: 20130521, end: 20130521
  2. PROPOFOL [Concomitant]
     Indication: INDUCTION OF ANAESTHESIA
     Dosage: 90 MG, 1 PER 1 TOTAL
     Route: 042
     Dates: start: 20130521, end: 20130521
  3. LEPTOSUCCIN [Concomitant]
     Dosage: UNK
     Route: 042
     Dates: start: 20130521, end: 20130521

REACTIONS (6)
  - Inadequate analgesia [Recovered/Resolved]
  - Lip oedema [Recovering/Resolving]
  - Tongue oedema [Recovering/Resolving]
  - Urticaria [Recovered/Resolved]
  - Hypersensitivity [Recovered/Resolved]
  - Erythema [Recovered/Resolved]
